FAERS Safety Report 13616178 (Version 1)
Quarter: 2017Q2

REPORT INFORMATION
  Report Type: Spontaneous
  Country: CH (occurrence: CH)
  Receive Date: 20170606
  Receipt Date: 20170606
  Transmission Date: 20170830
  Serious: Yes (Hospitalization)
  Sender: FDA-Public Use
  Company Number: CH-CONCORDIA PHARMACEUTICALS INC.-GSH201409-005359

PATIENT
  Age: 91 Year
  Sex: Female
  Weight: 56 kg

DRUGS (13)
  1. ACENOCOUMAROL [Concomitant]
     Active Substance: ACENOCOUMAROL
  2. ZOLPIDEM [Concomitant]
     Active Substance: ZOLPIDEM\ZOLPIDEM TARTRATE
  3. LISINOPRIL. [Concomitant]
     Active Substance: LISINOPRIL
  4. TORASEMIDE [Concomitant]
     Active Substance: TORSEMIDE
  5. METOPROLOL. [Concomitant]
     Active Substance: METOPROLOL
  6. FOLATE [Concomitant]
     Active Substance: FOLATE SODIUM
  7. CALCIUM CHOLECALCIFEROL [Concomitant]
     Active Substance: CALCIUM CARBONATE\CHOLECALCIFEROL
     Dosage: CALCIUM 500?MG/CHOLECALCIFEROL 400?IU BD
  8. ANASTROZOLE. [Concomitant]
     Active Substance: ANASTROZOLE
  9. DIGOXIN. [Suspect]
     Active Substance: DIGOXIN
     Indication: ATRIAL FIBRILLATION
  10. IBANDRONATE [Concomitant]
     Active Substance: IBANDRONATE SODIUM
  11. SIMVASTATIN. [Concomitant]
     Active Substance: SIMVASTATIN
  12. LORAZEPAM. [Concomitant]
     Active Substance: LORAZEPAM
  13. DILTIAZEM. [Concomitant]
     Active Substance: DILTIAZEM
     Indication: ATRIAL FIBRILLATION

REACTIONS (13)
  - Charles Bonnet syndrome [Recovering/Resolving]
  - Toxicity to various agents [Unknown]
  - Dysphagia [Recovering/Resolving]
  - Dysphagia [Unknown]
  - Blindness [Unknown]
  - Visual impairment [Unknown]
  - Photopsia [Not Recovered/Not Resolved]
  - Dyschromatopsia [Not Recovered/Not Resolved]
  - Cataract [Unknown]
  - Hallucination, visual [Not Recovered/Not Resolved]
  - Vomiting [Recovered/Resolved]
  - Nausea [Recovered/Resolved]
  - Age-related macular degeneration [Recovering/Resolving]
